FAERS Safety Report 7726317-0 (Version None)
Quarter: 2011Q3

REPORT INFORMATION
  Report Type: 
  Country: None (occurrence: None)
  Receive Date: 20110902
  Receipt Date: 20110826
  Transmission Date: 20111222
  Serious: Yes (Life-Threatening, Hospitalization)
  Sender: FDA-Public Use
  Company Number: KR-BAYER-2011-014615

PATIENT
  Age: 53 Year
  Sex: Male
  Weight: 59 kg

DRUGS (84)
  1. MEK INHIBITOR (DIHYDROXYPROP-DIFLU-METHOXYPHEN-CYCLOPROPA-SULFAMI) [Suspect]
     Dosage: 30 MG, BID
     Dates: start: 20110228, end: 20110306
  2. MEK INHIBITOR (DIHYDROXYPROP-DIFLU-METHOXYPHEN-CYCLOPROPA-SULFAMI) [Suspect]
     Dosage: 30 MG, QD
     Route: 048
     Dates: start: 20110307, end: 20110307
  3. MEK INHIBITOR (DIHYDROXYPROP-DIFLU-METHOXYPHEN-CYCLOPROPA-SULFAMI) [Suspect]
     Dosage: 30 MG, BID
     Route: 048
     Dates: start: 20110321, end: 20110414
  4. NEXAVAR [Suspect]
     Dosage: 400 MG, QD
     Route: 048
     Dates: start: 20110212, end: 20110212
  5. NEXAVAR [Suspect]
     Dosage: 400 MG, QD
     Dates: start: 20110314, end: 20110320
  6. CARVEDILOL [Concomitant]
     Dosage: 25 MG, QD
     Route: 048
     Dates: start: 20110415, end: 20110428
  7. ADALAT [Concomitant]
     Indication: HYPERTENSION
     Dosage: 60 MG, QD
     Route: 048
     Dates: start: 20100605, end: 20110428
  8. LOPERAMIDE HCL [Concomitant]
     Indication: DIARRHOEA
     Dosage: 2 MG, PRN
     Route: 048
     Dates: start: 20110207, end: 20110210
  9. ADELAVIN [Concomitant]
     Indication: SUPPLEMENTATION THERAPY
     Dosage: 2 ML, QD
     Route: 042
     Dates: start: 20110214, end: 20110216
  10. ACETYLCYSTEINE [Concomitant]
     Dosage: 600 MG, BID
     Route: 042
     Dates: start: 20110214, end: 20110216
  11. K40NS500 INJ [Concomitant]
     Indication: MEDICAL DIET
     Dosage: 500 ML, QD
     Route: 042
     Dates: start: 20110216, end: 20110217
  12. L-CARNITINE [Concomitant]
     Indication: HEPATITIS
     Dosage: 1 DF, TID
     Route: 048
     Dates: start: 20110217, end: 20110428
  13. URSA [Concomitant]
     Dosage: 100 MG, TID
     Route: 048
     Dates: start: 20110502, end: 20110823
  14. HEPASOL [Concomitant]
     Dosage: 25 MG, QD
     Route: 042
     Dates: start: 20110210, end: 20110210
  15. MEK INHIBITOR (DIHYDROXYPROP-DIFLU-METHOXYPHEN-CYCLOPROPA-SULFAMI) [Suspect]
     Dosage: 50 MG, BID
     Route: 048
     Dates: start: 20110208, end: 20110211
  16. MEK INHIBITOR (DIHYDROXYPROP-DIFLU-METHOXYPHEN-CYCLOPROPA-SULFAMI) [Suspect]
     Dosage: 30 MG, QD
     Route: 048
     Dates: start: 20110221, end: 20110227
  17. MEK INHIBITOR (DIHYDROXYPROP-DIFLU-METHOXYPHEN-CYCLOPROPA-SULFAMI) [Suspect]
     Dosage: 30 MG, BID
     Route: 048
     Dates: start: 20110415, end: 20110427
  18. NEXAVAR [Suspect]
     Dosage: 400 MG, QOD
     Route: 048
     Dates: start: 20110615, end: 20110706
  19. ADELAVIN [Concomitant]
     Dosage: 20 ML, QD
     Route: 042
     Dates: start: 20110725, end: 20110801
  20. PHENIRAMINE [Concomitant]
     Dosage: 1440 ML, UNK
     Dates: start: 20110216, end: 20110217
  21. PHENIRAMINE [Concomitant]
     Dosage: UNK
     Route: 048
     Dates: start: 20110217
  22. PHENIRAMINE [Concomitant]
     Dosage: 4 MG, QD
     Route: 042
     Dates: start: 20110429, end: 20110430
  23. ULTRAVIST 150 [Concomitant]
     Indication: COMPUTERISED TOMOGRAM
     Dosage: 100 ML, QD
     Route: 042
     Dates: start: 20110201, end: 20110201
  24. ULTRAVIST 150 [Concomitant]
     Dosage: 100 ML, QD
     Route: 042
     Dates: start: 20110314, end: 20110314
  25. ULTRAVIST 150 [Concomitant]
     Dosage: 100 ML, QD
     Route: 042
     Dates: start: 20110719, end: 20110719
  26. MEK INHIBITOR (DIHYDROXYPROP-DIFLU-METHOXYPHEN-CYCLOPROPA-SULFAMI) [Suspect]
     Dosage: 30 MG, QD
     Route: 048
     Dates: start: 20110314, end: 20110314
  27. NEXAVAR [Suspect]
     Dosage: 600 MG, QD
     Route: 048
     Dates: start: 20110208, end: 20110211
  28. NEXAVAR [Suspect]
     Dosage: 400 MG, QOD
     Route: 048
     Dates: start: 20110526, end: 20110613
  29. LANSOPRAZOLE [Concomitant]
     Dosage: 15 ML, QD
     Route: 048
     Dates: start: 20110217, end: 20110428
  30. CELEBREX [Concomitant]
     Indication: PERIPHERAL SENSORY NEUROPATHY
     Dosage: 200 MG, BID
     Route: 048
     Dates: start: 20101229, end: 20110226
  31. ADELAVIN [Concomitant]
     Dosage: 2 ML, QD
     Route: 042
     Dates: start: 20110430, end: 20110504
  32. PHENIRAMINE [Concomitant]
     Dosage: 1000 MG, UNK
     Route: 042
     Dates: start: 20110216, end: 20110216
  33. CLINIMIX 2.75/10 SULFITE FREE IN DEXTROSE 10% [Concomitant]
     Indication: MEDICAL DIET
     Dosage: 1500 ML, QD
     Route: 042
     Dates: start: 20110214, end: 20110216
  34. M.V.I. [Concomitant]
     Dosage: 5 ML, QD
     Route: 042
     Dates: start: 20110502, end: 20110503
  35. SIMETHICONE [Concomitant]
     Dosage: 20 ML, QD
     Route: 048
     Dates: start: 20110725, end: 20110725
  36. MAGNESIUM OXIDE [Concomitant]
     Dosage: 500 MG, TID
     Route: 048
     Dates: start: 20110706, end: 20110823
  37. MEK INHIBITOR (DIHYDROXYPROP-DIFLU-METHOXYPHEN-CYCLOPROPA-SULFAMI) [Suspect]
     Dosage: 30 MG, BID
     Route: 048
     Dates: start: 20110315, end: 20110320
  38. NEXAVAR [Suspect]
     Dosage: 400 MG, QOD
     Route: 048
     Dates: start: 20110706, end: 20110724
  39. CARVEDILOL [Concomitant]
     Indication: HYPERTENSION
     Dosage: 25 MG, QD
     Route: 048
     Dates: start: 20100616, end: 20110213
  40. LANSOPRAZOLE [Concomitant]
     Indication: GASTROOESOPHAGEAL REFLUX DISEASE
     Dosage: 30 MG, QD
     Route: 048
     Dates: start: 20100714, end: 20110213
  41. PHENIRAMINE [Concomitant]
     Indication: PREMEDICATION
     Dosage: 4 MG, QD
     Route: 042
     Dates: start: 20110215, end: 20110215
  42. LASIX [Concomitant]
     Dosage: 20 MG, QD
     Route: 042
     Dates: start: 20110216, end: 20110216
  43. CLINIMIX 2.75/10 SULFITE FREE IN DEXTROSE 10% [Concomitant]
     Dosage: 1500 ML, QD
     Route: 042
     Dates: start: 20110725, end: 20110803
  44. ULTRAVIST 150 [Concomitant]
     Dosage: 100 ML, QD
     Route: 042
     Dates: start: 20110518, end: 20110518
  45. LANSTON [Concomitant]
     Indication: GASTROOESOPHAGEAL REFLUX DISEASE
     Dosage: 30 MG, QD
     Dates: start: 20100614, end: 20110213
  46. LANSTON [Concomitant]
     Indication: UPPER GASTROINTESTINAL HAEMORRHAGE
     Dosage: 15 ML, QD
     Route: 048
     Dates: start: 20110217, end: 20110428
  47. URSA [Concomitant]
     Dosage: 100 MG, TID
     Route: 048
     Dates: start: 20110217, end: 20110228
  48. MEK INHIBITOR (DIHYDROXYPROP-DIFLU-METHOXYPHEN-CYCLOPROPA-SULFAMI) [Suspect]
     Indication: HEPATIC NEOPLASM MALIGNANT
     Dosage: 50 MG, QD
     Route: 048
     Dates: start: 20110207, end: 20110207
  49. MEK INHIBITOR (DIHYDROXYPROP-DIFLU-METHOXYPHEN-CYCLOPROPA-SULFAMI) [Suspect]
     Dosage: 30 MG, BID
     Route: 048
     Dates: start: 20110510, end: 20110525
  50. NEXAVAR [Suspect]
     Indication: HEPATIC NEOPLASM MALIGNANT
     Dosage: 400 MG, QD
     Route: 048
     Dates: start: 20110207, end: 20110207
  51. NEXAVAR [Suspect]
     Dosage: 400 MG, QD
     Route: 048
     Dates: start: 20110321, end: 20110414
  52. CARVEDILOL [Concomitant]
     Dosage: 25 MG, QD
     Route: 048
     Dates: start: 20110502, end: 20110823
  53. LASIX [Concomitant]
     Indication: PREMEDICATION
     Dosage: 20 MG, QD
     Route: 042
     Dates: start: 20110215, end: 20110215
  54. SIMETHICONE [Concomitant]
     Dosage: 20 ML, QD
     Route: 048
     Dates: start: 20110429, end: 20110429
  55. MEK INHIBITOR (DIHYDROXYPROP-DIFLU-METHOXYPHEN-CYCLOPROPA-SULFAMI) [Suspect]
     Dosage: 30 MG, QD
     Route: 048
     Dates: start: 20110428, end: 20110428
  56. MEK INHIBITOR (DIHYDROXYPROP-DIFLU-METHOXYPHEN-CYCLOPROPA-SULFAMI) [Suspect]
     Dosage: 30 MG, BID
     Route: 048
     Dates: start: 20110525, end: 20110614
  57. MEK INHIBITOR (DIHYDROXYPROP-DIFLU-METHOXYPHEN-CYCLOPROPA-SULFAMI) [Suspect]
     Dosage: 30 MG, BID
     Route: 048
     Dates: start: 20110706, end: 20110724
  58. MEK INHIBITOR (DIHYDROXYPROP-DIFLU-METHOXYPHEN-CYCLOPROPA-SULFAMI) [Suspect]
     Dosage: 30 MG, QD
     Route: 048
     Dates: start: 20110725, end: 20110725
  59. NEURONTIN [Concomitant]
     Indication: PAIN
     Dosage: 300 MG, TID
     Route: 048
     Dates: start: 20110217, end: 20110428
  60. PHENIRAMINE [Concomitant]
     Dosage: 4 MG, UNK
     Route: 042
     Dates: start: 20110725, end: 20110725
  61. TC-99M-RBC [Concomitant]
     Dosage: 1 BOTTLE QD
     Route: 042
     Dates: start: 20110323, end: 20110323
  62. MEK INHIBITOR (DIHYDROXYPROP-DIFLU-METHOXYPHEN-CYCLOPROPA-SULFAMI) [Suspect]
     Dosage: 50 MG, QD
     Route: 048
     Dates: start: 20110212, end: 20110212
  63. MEK INHIBITOR (DIHYDROXYPROP-DIFLU-METHOXYPHEN-CYCLOPROPA-SULFAMI) [Suspect]
     Dosage: 30 MG, QD
     Route: 048
     Dates: start: 20110509, end: 20110509
  64. PHENIRAMINE [Concomitant]
     Dosage: 4 MG, QD
     Route: 042
     Dates: start: 20110216, end: 20110216
  65. CLINIMIX 2.75/10 SULFITE FREE IN DEXTROSE 10% [Concomitant]
     Dosage: 1.5 L QD
     Route: 042
     Dates: start: 20110502, end: 20110503
  66. KABIVEN [Concomitant]
     Indication: MEDICAL DIET
     Dosage: 1440 ML, QD
     Route: 042
     Dates: start: 20110216, end: 20110217
  67. MUCOSTIN [Concomitant]
     Dosage: 600 MG, BID
     Route: 042
     Dates: start: 20110214, end: 20110216
  68. L-CARNITINE [Concomitant]
     Dosage: 1 C TID
     Route: 048
     Dates: start: 20110502, end: 20110823
  69. TC-99M-RBC [Concomitant]
     Dosage: 1 BOTTLE QD
     Route: 042
     Dates: start: 20110201, end: 20110201
  70. TC-99M-RBC [Concomitant]
     Dosage: 1 BOTTLE QD
     Route: 042
     Dates: start: 20110801, end: 20110801
  71. COMBIFLEX [Concomitant]
     Dosage: 1440 ML, QD
     Route: 042
     Dates: start: 20110430, end: 20110502
  72. MEK INHIBITOR (DIHYDROXYPROP-DIFLU-METHOXYPHEN-CYCLOPROPA-SULFAMI) [Suspect]
     Dosage: 30 MG, BID
     Route: 048
     Dates: start: 20110615, end: 20110705
  73. NEXAVAR [Suspect]
     Dosage: 400 MG, QD
     Dates: start: 20110221, end: 20110227
  74. NEXAVAR [Suspect]
     Dosage: 400 MG, QD
     Route: 048
     Dates: start: 20110228, end: 20110306
  75. NEXAVAR [Suspect]
     Dosage: 400 MG, QD
     Route: 048
     Dates: start: 20110415, end: 20110427
  76. NEXAVAR [Suspect]
     Dosage: 400 MG, QOD
     Route: 048
     Dates: start: 20110510, end: 20110525
  77. NEURONTIN [Concomitant]
     Indication: PERIPHERAL SENSORY NEUROPATHY
     Dosage: 300 MG, TID
     Route: 048
     Dates: start: 20101115, end: 20110213
  78. NEURONTIN [Concomitant]
     Dosage: 300 MG, TID
     Dates: start: 20110502, end: 20110823
  79. PHENIRAMINE [Concomitant]
     Dosage: 150000 U, UNK
     Dates: start: 20110215, end: 20110220
  80. PHENIRAMINE [Concomitant]
  81. CLINIMIX 2.75/10 SULFITE FREE IN DEXTROSE 10% [Concomitant]
     Dosage: 1500 ML, QD
     Route: 042
     Dates: start: 20110429, end: 20110430
  82. LIVACT [AMINO ACIDS NOS] [Concomitant]
     Dosage: 4.15 MG, TID
     Route: 042
     Dates: start: 20101115, end: 20110131
  83. HYDROMORPHONE HCL [Concomitant]
     Indication: PERIPHERAL SENSORY NEUROPATHY
     Dosage: 4 MG, TID
     Route: 048
     Dates: start: 20110706, end: 20110823
  84. SIMETHICONE [Concomitant]
     Dosage: 20 ML, QD
     Route: 048
     Dates: start: 20110214, end: 20110214

REACTIONS (3)
  - CEREBRAL HAEMORRHAGE [None]
  - UPPER GASTROINTESTINAL HAEMORRHAGE [None]
  - DUODENAL ULCER [None]
